FAERS Safety Report 10432829 (Version 1)
Quarter: 2014Q3

REPORT INFORMATION
  Report Type: Spontaneous
  Country: ES (occurrence: ES)
  Receive Date: 20140905
  Receipt Date: 20140905
  Transmission Date: 20150326
  Serious: Yes (Hospitalization, Other)
  Sender: FDA-Public Use
  Company Number: PHHY2014ES106307

PATIENT
  Age: 29 Year
  Sex: Female

DRUGS (7)
  1. GLYBURIDE. [Suspect]
     Active Substance: GLYBURIDE
     Indication: TYPE 2 DIABETES MELLITUS
     Dosage: 5 MG DAILY
     Route: 048
  2. INSULIN [Suspect]
     Active Substance: INSULIN NOS
     Dosage: 2 U, (1.4-2 UNITS PER HOUR)
  3. SIMVASTATIN. [Suspect]
     Active Substance: SIMVASTATIN
     Indication: TYPE 2 DIABETES MELLITUS
     Dosage: 40 MG DAILY
     Route: 048
  4. INSULIN [Suspect]
     Active Substance: INSULIN NOS
     Indication: TYPE 2 DIABETES MELLITUS
  5. GELARGIN [Suspect]
     Active Substance: FLUOCINOLONE ACETONIDE
     Indication: TYPE 2 DIABETES MELLITUS
     Dosage: 25 U, AT NIGHT
  6. CARBOHYDRATES [Suspect]
     Active Substance: CARBOHYDRATES
  7. METFORMIN [Suspect]
     Active Substance: METFORMIN HYDROCHLORIDE
     Indication: TYPE 2 DIABETES MELLITUS
     Dosage: 850 MG, TID
     Route: 048

REACTIONS (5)
  - Hypoglycaemia [Unknown]
  - Diabetes mellitus inadequate control [Unknown]
  - Premature rupture of membranes [Unknown]
  - Maternal exposure during pregnancy [Unknown]
  - Glycosylated haemoglobin increased [Unknown]
